APPROVED DRUG PRODUCT: PERAMPANEL
Active Ingredient: PERAMPANEL
Strength: 0.5MG/ML
Dosage Form/Route: SUSPENSION;ORAL
Application: A218152 | Product #001 | TE Code: AB
Applicant: MSN LABORATORIES PRIVATE LTD
Approved: Jul 11, 2025 | RLD: No | RS: No | Type: RX